FAERS Safety Report 6277798-3 (Version None)
Quarter: 2009Q3

REPORT INFORMATION
  Report Type: 
  Country: None (occurrence: None)
  Receive Date: 20090722
  Receipt Date: 20090709
  Transmission Date: 20100115
  Serious: Yes (Hospitalization)
  Sender: FDA-Public Use
  Company Number: US-ELI_LILLY_AND_COMPANY-US200802004810

PATIENT
  Sex: Male

DRUGS (5)
  1. ZYPREXA [Suspect]
     Dosage: 15 MG, UNKNOWN
     Route: 065
  2. VALIUM [Concomitant]
     Dosage: 5 MG, EACH EVENING
  3. CLONAZEPAM [Concomitant]
     Dosage: 0.5 MG, EACH EVENING
  4. TRAZODONE [Concomitant]
     Dosage: 150 MG, UNK
  5. HYDROXYZINE PAMOATE [Concomitant]
     Dosage: 50 MG, UNK

REACTIONS (2)
  - HOSPITALISATION [None]
  - TYPE 2 DIABETES MELLITUS [None]
